FAERS Safety Report 20960253 (Version 1)
Quarter: 2022Q2

REPORT INFORMATION
  Report Type: Spontaneous
  Country: CN (occurrence: CN)
  Receive Date: 20220615
  Receipt Date: 20220615
  Transmission Date: 20220721
  Serious: Yes (Other)
  Sender: FDA-Public Use
  Company Number: CN-CHEPLA-2022004706

PATIENT
  Age: 8 Year
  Sex: Male

DRUGS (36)
  1. GANCICLOVIR [Suspect]
     Active Substance: GANCICLOVIR
     Indication: Antiviral prophylaxis
     Dosage: GANCICLOVIR SINCE MARCH 26, 2020
     Route: 065
     Dates: start: 20200326
  2. GANCICLOVIR [Suspect]
     Active Substance: GANCICLOVIR
     Indication: Epstein-Barr virus infection
     Dosage: GANCICLOVIR SINCE MARCH 26, 2020
     Route: 065
     Dates: start: 20200326
  3. GANCICLOVIR [Suspect]
     Active Substance: GANCICLOVIR
     Indication: Diffuse large B-cell lymphoma
     Dosage: GANCICLOVIR SINCE MARCH 26, 2020
     Route: 065
     Dates: start: 20200326
  4. GANCICLOVIR [Suspect]
     Active Substance: GANCICLOVIR
     Indication: Antiviral prophylaxis
     Route: 065
  5. GANCICLOVIR [Suspect]
     Active Substance: GANCICLOVIR
     Indication: Epstein-Barr virus infection
     Route: 065
  6. GANCICLOVIR [Suspect]
     Active Substance: GANCICLOVIR
     Indication: Diffuse large B-cell lymphoma
     Route: 065
  7. DAUNORUBICIN [Suspect]
     Active Substance: DAUNORUBICIN
     Indication: Acute lymphocytic leukaemia
     Dosage: ADMINISTRATED THREE CONSECUTIVE DAILY DOSES EVERY 3 WEEKS AND THE INFUSION DOSAGE EACH DAY D1- 40...
     Route: 041
     Dates: start: 201303, end: 201305
  8. DAUNORUBICIN [Suspect]
     Active Substance: DAUNORUBICIN
     Indication: Acute lymphocytic leukaemia
     Dosage: MRD (+) VLDPX1 AND INFUSION DOSAGE FROM D1:20MG; D2:20MG; D3:20MG
     Route: 041
     Dates: start: 201501
  9. DAUNORUBICIN [Suspect]
     Active Substance: DAUNORUBICIN
     Indication: Acute lymphocytic leukaemia
     Dosage: MRD(+); VLDP X1 AND INFUSION DOSAGE FROM D1:40MG; D2:20MG; D3:20MG
     Route: 041
     Dates: start: 201509, end: 201512
  10. DAUNORUBICIN [Suspect]
     Active Substance: DAUNORUBICIN
     Indication: Acute lymphocytic leukaemia
     Dosage: WITH ADMINISTRATING ANOTHER DOSE OF DAUNORUBICIN, HIS CARDIAC FAILURE WAS AGGRAVATED.
     Route: 041
  11. VINDESINE [Suspect]
     Active Substance: VINDESINE
     Indication: Acute lymphocytic leukaemia
     Dosage: VLDPX2
     Route: 065
     Dates: start: 201303, end: 201305
  12. VINDESINE [Suspect]
     Active Substance: VINDESINE
     Indication: Acute lymphocytic leukaemia
     Dosage: MRD(+) VLDPX1
     Route: 065
     Dates: start: 201501
  13. VINDESINE [Suspect]
     Active Substance: VINDESINE
     Indication: Acute lymphocytic leukaemia
     Dosage: MRD (+) VLDP X 1
     Route: 065
     Dates: start: 201509, end: 201512
  14. ASPARAGINASE [Suspect]
     Active Substance: ASPARAGINASE
     Indication: Acute lymphocytic leukaemia
     Dosage: VLDP X2
     Route: 065
     Dates: start: 201303, end: 201305
  15. ASPARAGINASE [Suspect]
     Active Substance: ASPARAGINASE
     Indication: Acute lymphocytic leukaemia
     Dosage: MRD (+); VLDP X1
     Route: 065
     Dates: start: 201501
  16. ASPARAGINASE [Suspect]
     Active Substance: ASPARAGINASE
     Indication: Acute lymphocytic leukaemia
     Dosage: VLDP X2 ; MRD (+)
     Route: 065
     Dates: start: 201509, end: 201512
  17. PREDNISONE [Suspect]
     Active Substance: PREDNISONE
     Indication: Acute lymphocytic leukaemia
     Dosage: VLDP X2
     Route: 065
     Dates: start: 201303, end: 201305
  18. PREDNISONE [Suspect]
     Active Substance: PREDNISONE
     Indication: Acute lymphocytic leukaemia
     Dosage: VLDP X 1 ; MRD (+)
     Route: 065
     Dates: start: 201501
  19. PREDNISONE [Suspect]
     Active Substance: PREDNISONE
     Indication: Acute lymphocytic leukaemia
     Dosage: VLDP X 2 ; MRD (+)
     Route: 065
     Dates: start: 201509, end: 201512
  20. CYCLOPHOSPHAMIDE [Suspect]
     Active Substance: CYCLOPHOSPHAMIDE
     Indication: Acute lymphocytic leukaemia
     Dosage: MRD (-)
     Route: 065
     Dates: start: 201305
  21. CYCLOPHOSPHAMIDE [Suspect]
     Active Substance: CYCLOPHOSPHAMIDE
     Indication: Acute lymphocytic leukaemia
     Route: 065
     Dates: start: 201308
  22. CYCLOPHOSPHAMIDE [Suspect]
     Active Substance: CYCLOPHOSPHAMIDE
     Indication: Acute lymphocytic leukaemia
     Dosage: MRD (+)
     Route: 065
     Dates: start: 201505, end: 201512
  23. CYTARABINE [Suspect]
     Active Substance: CYTARABINE
     Indication: Acute lymphocytic leukaemia
     Dosage: MRD (-)
     Route: 065
     Dates: start: 201305
  24. CYTARABINE [Suspect]
     Active Substance: CYTARABINE
     Indication: Acute lymphocytic leukaemia
     Route: 065
     Dates: start: 201308
  25. CYTARABINE [Suspect]
     Active Substance: CYTARABINE
     Indication: Acute lymphocytic leukaemia
     Dosage: MRD (+)
     Route: 065
     Dates: start: 201505, end: 201512
  26. MERCAPTOPURINE [Suspect]
     Active Substance: MERCAPTOPURINE
     Indication: Acute lymphocytic leukaemia
     Dosage: MRD (-)
     Route: 065
     Dates: start: 201305
  27. MERCAPTOPURINE [Suspect]
     Active Substance: MERCAPTOPURINE
     Indication: Acute lymphocytic leukaemia
     Route: 065
     Dates: start: 201308
  28. MERCAPTOPURINE [Suspect]
     Active Substance: MERCAPTOPURINE
     Indication: Acute lymphocytic leukaemia
     Dosage: MRD (+)
     Route: 065
     Dates: start: 201505, end: 201512
  29. METHOTREXATE [Suspect]
     Active Substance: METHOTREXATE
     Indication: Acute lymphocytic leukaemia
     Route: 065
     Dates: start: 201306, end: 201307
  30. METHOTREXATE [Suspect]
     Active Substance: METHOTREXATE
     Indication: Acute lymphocytic leukaemia
     Dosage: HIGH DOSE OF MTX; MRD (+)
     Route: 065
     Dates: start: 201505, end: 201512
  31. TACROLIMUS [Suspect]
     Active Substance: TACROLIMUS
     Indication: Immunosuppression
     Route: 065
  32. MYCOPHENOLATE MOFETIL [Suspect]
     Active Substance: MYCOPHENOLATE MOFETIL
     Indication: Immunosuppression
     Route: 065
  33. CYCLOPHOSPHAMIDE\DOXORUBICIN\PREDNISONE\RITUXIMAB\VINCRISTINE [Concomitant]
     Active Substance: CYCLOPHOSPHAMIDE\DOXORUBICIN\PREDNISONE\RITUXIMAB\VINCRISTINE
     Route: 065
  34. UNSPECIFIED INGREDIENT [Concomitant]
     Active Substance: UNSPECIFIED INGREDIENT
     Indication: Acute lymphocytic leukaemia
     Route: 065
  35. CAPTOPRIL [Concomitant]
     Active Substance: CAPTOPRIL
     Indication: Cardiac failure
     Route: 065
  36. DIGOXIN [Concomitant]
     Active Substance: DIGOXIN
     Indication: Cardiac failure
     Route: 065

REACTIONS (3)
  - Diffuse large B-cell lymphoma [Unknown]
  - Product use in unapproved indication [Not Recovered/Not Resolved]
  - Product use issue [Not Recovered/Not Resolved]

NARRATIVE: CASE EVENT DATE: 20200326
